FAERS Safety Report 5941769-4 (Version None)
Quarter: 2008Q4

REPORT INFORMATION
  Report Type: 
  Country: None (occurrence: None)
  Receive Date: 20081105
  Receipt Date: 20081027
  Transmission Date: 20090506
  Serious: Yes (Hospitalization, Other)
  Sender: FDA-Public Use
  Company Number: PHHY2008BR18233

PATIENT
  Sex: Female
  Weight: 57 kg

DRUGS (6)
  1. EXELON [Suspect]
     Indication: DEMENTIA ALZHEIMER'S TYPE
     Dosage: 3 MG, BID
     Route: 048
     Dates: start: 20030101, end: 20080801
  2. TEGRETOL [Concomitant]
     Indication: TRIGEMINAL NEURALGIA
     Dosage: 400 MG, BID
     Route: 048
  3. ATENOLOL [Concomitant]
     Indication: HYPERTENSION
     Dosage: 50 MG, QD
     Route: 048
  4. AAS [Concomitant]
     Indication: CARDIAC DISORDER
     Dosage: 2 TABLET/DAY
     Route: 048
  5. STABLON [Concomitant]
     Indication: DEPRESSED MOOD
     Dosage: 12.5 MG, QD
     Route: 048
  6. LIPITOR [Concomitant]
     Indication: BLOOD CHOLESTEROL
     Dosage: 0.5 DF, QD
     Route: 048

REACTIONS (6)
  - BLOOD PRESSURE FLUCTUATION [None]
  - DIZZINESS [None]
  - GASTRIC NEOPLASM [None]
  - GASTROINTESTINAL SURGERY [None]
  - MUSCULAR WEAKNESS [None]
  - NAUSEA [None]
